FAERS Safety Report 6112816-4 (Version None)
Quarter: 2009Q1

REPORT INFORMATION
  Report Type: 
  Country: None (occurrence: None)
  Receive Date: 20090312
  Receipt Date: 20090309
  Transmission Date: 20090719
  Serious: Yes (Other)
  Sender: FDA-Public Use
  Company Number: ES-BRISTOL-MYERS SQUIBB COMPANY-14538144

PATIENT
  Age: 33 Year
  Sex: Male

DRUGS (3)
  1. EFAVIRENZ [Suspect]
     Indication: HIV INFECTION
     Dates: start: 20030806, end: 20040308
  2. STAVUDINE [Suspect]
     Indication: HIV INFECTION
     Dates: start: 20030806, end: 20040308
  3. TENOFOVIR [Suspect]
     Indication: HIV INFECTION
     Dates: start: 20030806, end: 20040308

REACTIONS (2)
  - DRUG RESISTANCE [None]
  - PROGRESSIVE MULTIFOCAL LEUKOENCEPHALOPATHY [None]
